FAERS Safety Report 15587973 (Version 1)
Quarter: 2018Q4

REPORT INFORMATION
  Report Type: Spontaneous
  Country: GB (occurrence: GB)
  Receive Date: 20181105
  Receipt Date: 20181105
  Transmission Date: 20190205
  Serious: Yes (Hospitalization, Other)
  Sender: FDA-Public Use
  Company Number: GB-IMPAX LABORATORIES, LLC-2018-IPXL-03614

PATIENT
  Age: 65 Year
  Sex: Male

DRUGS (3)
  1. HYDROCORTISONE. [Suspect]
     Active Substance: HYDROCORTISONE
     Indication: HYPERSENSITIVITY
     Dosage: 200 MILLIGRAM, UNK
     Route: 065
  2. CHLORPHENAMINE [Suspect]
     Active Substance: CHLORPHENIRAMINE MALEATE
     Indication: HYPERSENSITIVITY
     Dosage: 10 MILLIGRAM, UNK
     Route: 065
  3. AMLODIPINE [Suspect]
     Active Substance: AMLODIPINE BESYLATE
     Indication: HYPERTENSION
     Dosage: UNK
     Route: 065

REACTIONS (5)
  - Pneumothorax [Unknown]
  - Pleurocutaneous fistula [Unknown]
  - Tachycardia [Unknown]
  - Hypertension [Unknown]
  - Subcutaneous emphysema [Unknown]
